FAERS Safety Report 8564030 (Version 4)
Quarter: 2013Q3

REPORT INFORMATION
  Report Type: Spontaneous
  Country: US (occurrence: US)
  Receive Date: 20120516
  Receipt Date: 20130909
  Transmission Date: 20140515
  Serious: Yes (Hospitalization, Other)
  Sender: FDA-Public Use
  Company Number: US-SANOFI-AVENTIS-2012SA031935

PATIENT
  Age: 77 Year
  Sex: Female
  Weight: 70 kg

DRUGS (13)
  1. LANTUS SOLOSTAR [Suspect]
     Indication: TYPE 2 DIABETES MELLITUS
     Dosage: DOSE:10 UNIT(S)
     Route: 058
     Dates: start: 200303
  2. LANTUS SOLOSTAR [Suspect]
     Indication: TYPE 2 DIABETES MELLITUS
     Dosage: DOSE:15 UNIT(S)
     Route: 058
     Dates: start: 2006
  3. LANTUS SOLOSTAR [Suspect]
     Indication: TYPE 2 DIABETES MELLITUS
     Dosage: DOSE:12 UNIT(S)
     Route: 058
  4. LANTUS SOLOSTAR [Suspect]
     Indication: TYPE 2 DIABETES MELLITUS
     Dosage: PRODUCT START DATE- 2007 DOSE:15 UNIT(S)
     Route: 058
     Dates: start: 2007
  5. SOLOSTAR [Suspect]
     Indication: TYPE 2 DIABETES MELLITUS
     Dates: start: 2007
  6. TOPROL XL [Concomitant]
     Indication: CARDIAC DISORDER
  7. TOPROL XL [Concomitant]
     Indication: BLOOD PRESSURE
  8. LISINOPRIL [Concomitant]
     Indication: CARDIAC DISORDER
  9. LISINOPRIL [Concomitant]
     Indication: BLOOD PRESSURE
  10. GLYBURIDE W/METFORMIN [Concomitant]
     Indication: DIABETES MELLITUS
     Dates: start: 2002
  11. METFORMIN [Concomitant]
     Indication: DIABETES MELLITUS
     Dates: start: 2002
  12. CORTICOSTEROID NOS [Concomitant]
  13. GLIPIZIDE [Concomitant]

REACTIONS (10)
  - Atrial fibrillation [Unknown]
  - Hypoglycaemic coma [Unknown]
  - Pain in extremity [Unknown]
  - Hypoglycaemia [Unknown]
  - Tremor [Unknown]
  - Malaise [Unknown]
  - Heart rate increased [Unknown]
  - Blood glucose increased [Unknown]
  - Injection site pain [Unknown]
  - Injection site haemorrhage [Unknown]
